FAERS Safety Report 5410417-4 (Version None)
Quarter: 2007Q3

REPORT INFORMATION
  Report Type: 
  Country: None (occurrence: None)
  Receive Date: 20070808
  Receipt Date: 20070723
  Transmission Date: 20080115
  Serious: Yes (Hospitalization)
  Sender: FDA-Public Use
  Company Number: 159095ISR

PATIENT
  Age: 30 Year
  Sex: Female

DRUGS (3)
  1. DOXEPIN HCL [Suspect]
     Indication: BIPOLAR DISORDER
     Dosage: 75 MG, ORAL
     Route: 048
     Dates: start: 20070610
  2. PERAZINE [Suspect]
     Indication: BIPOLAR DISORDER
     Dosage: 200 MG, ORAL
     Route: 048
     Dates: start: 20070610
  3. SERTRALINE (LUXETA) [Suspect]
     Indication: BIPOLAR DISORDER
     Dosage: 50 MG, ORAL
     Route: 048
     Dates: start: 20070610, end: 20070618

REACTIONS (1)
  - VENTRICULAR TACHYCARDIA [None]
